FAERS Safety Report 9682730 (Version 2)
Quarter: 2013Q4

REPORT INFORMATION
  Report Type: Report from Study
  Country: US (occurrence: US)
  Receive Date: 20131112
  Receipt Date: 20131112
  Transmission Date: 20140711
  Serious: Yes (Hospitalization)
  Sender: FDA-Public Use
  Company Number: US-ROCHE-1257695

PATIENT
  Sex: Male

DRUGS (5)
  1. PEGASYS [Suspect]
     Indication: CHRONIC HEPATITIS C
     Route: 065
     Dates: end: 20130707
  2. PEGASYS [Suspect]
     Route: 065
     Dates: start: 20130804
  3. RIBAVIRIN [Suspect]
     Indication: CHRONIC HEPATITIS C
     Route: 065
     Dates: end: 20130707
  4. RIBAVIRIN [Suspect]
     Route: 065
     Dates: start: 20130804
  5. BOCEPREVIR [Suspect]
     Indication: CHRONIC HEPATITIS C
     Dosage: 4 PILLS.
     Route: 065
     Dates: start: 20130804

REACTIONS (13)
  - Ammonia increased [Unknown]
  - Generalised oedema [Unknown]
  - Laboratory test abnormal [Unknown]
  - Fatigue [Unknown]
  - Apathy [Unknown]
  - Asthenia [Unknown]
  - Somnolence [Unknown]
  - Diarrhoea [Unknown]
  - Faeces discoloured [Unknown]
  - Nausea [Unknown]
  - Vomiting [Unknown]
  - Decreased appetite [Unknown]
  - Hepatic cancer [Unknown]
